FAERS Safety Report 6475876-7 (Version None)
Quarter: 2009Q4

REPORT INFORMATION
  Report Type: 
  Country: None (occurrence: None)
  Receive Date: 20091204
  Receipt Date: 20091130
  Transmission Date: 20100525
  Serious: Yes (Life-Threatening, Hospitalization)
  Sender: FDA-Public Use
  Company Number: FR-ELI_LILLY_AND_COMPANY-FR200912000124

PATIENT
  Age: 54 Year
  Sex: Female
  Weight: 83 kg

DRUGS (6)
  1. BYETTA [Suspect]
     Indication: TYPE 2 DIABETES MELLITUS
     Dosage: 10 UG, 2/D
     Route: 058
     Dates: start: 20090728, end: 20091017
  2. GLUCOPHAGE [Concomitant]
     Dosage: UNK, UNKNOWN
  3. FENOFIBRATE [Concomitant]
     Dosage: UNK, UNKNOWN
  4. COLCHIMAX [Concomitant]
     Dosage: UNK, UNKNOWN
  5. ALLOPURINOL [Concomitant]
     Dosage: UNK, UNKNOWN
  6. BUFLOMEDIL [Concomitant]
     Dosage: UNK, UNKNOWN

REACTIONS (1)
  - MYOCARDIAL INFARCTION [None]
